FAERS Safety Report 9392524 (Version 4)
Quarter: 2013Q3

REPORT INFORMATION
  Report Type: Spontaneous
  Country: US (occurrence: US)
  Receive Date: 20130710
  Receipt Date: 20130926
  Transmission Date: 20140515
  Serious: No
  Sender: FDA-Public Use
  Company Number: US-BIOGENIDEC-2013BI060674

PATIENT
  Sex: Female

DRUGS (1)
  1. TYSABRI [Suspect]
     Indication: MULTIPLE SCLEROSIS
     Route: 042
     Dates: start: 20130325, end: 20130528

REACTIONS (6)
  - Sensory loss [Unknown]
  - Pain [Not Recovered/Not Resolved]
  - Hemiparesis [Unknown]
  - Drug ineffective [Unknown]
  - Alopecia [Unknown]
  - Diplopia [Not Recovered/Not Resolved]
